FAERS Safety Report 13127968 (Version 1)
Quarter: 2017Q1

REPORT INFORMATION
  Report Type: Spontaneous
  Country: KR (occurrence: KR)
  Receive Date: 20170118
  Receipt Date: 20170118
  Transmission Date: 20170428
  Serious: Yes (Hospitalization)
  Sender: FDA-Public Use
  Company Number: KR-009507513-1701KOR006844

PATIENT
  Age: 64 Year
  Sex: Female

DRUGS (52)
  1. EMEND (FOSAPREPITANT DIMEGLUMINE) [Suspect]
     Active Substance: FOSAPREPITANT DIMEGLUMINE
     Dosage: 150 MG, ONCE
     Route: 042
     Dates: start: 20161201, end: 20161201
  2. DEXAMETHASONE. [Concomitant]
     Active Substance: DEXAMETHASONE
     Dosage: 4 MG, STRENGTH 5MG/ML
     Route: 042
     Dates: start: 20161022, end: 20161023
  3. DEXAMETHASONE. [Concomitant]
     Active Substance: DEXAMETHASONE
     Dosage: 12 MG, ONCE, STRENGTH 5MG/ML
     Route: 042
     Dates: start: 20161110, end: 20161110
  4. ALOXI [Concomitant]
     Active Substance: PALONOSETRON HYDROCHLORIDE
     Indication: PREMEDICATION
     Dosage: 0.25 ML, ONCE
     Route: 042
     Dates: start: 20160929, end: 20160929
  5. ULTRACET [Concomitant]
     Active Substance: ACETAMINOPHEN\TRAMADOL HYDROCHLORIDE
     Indication: PROPHYLAXIS
     Dosage: 1 TABLET, FREQUENCY 2
     Route: 048
     Dates: start: 20161013
  6. MACPERAN [Concomitant]
     Active Substance: METOCLOPRAMIDE HYDROCHLORIDE
     Indication: PROPHYLAXIS
     Dosage: 1 AMP, FREQUENCY 1
     Route: 042
     Dates: start: 20161113, end: 20161113
  7. MAGO [Concomitant]
     Indication: PROPHYLAXIS
     Dosage: 1 CAPSULE, FREQUENCY 1
     Route: 048
     Dates: start: 20160930, end: 20161127
  8. TANTUM [Concomitant]
     Active Substance: BENZYDAMINE HYDROCHLORIDE
     Indication: PROPHYLAXIS
     Dosage: 1 BTL, FREQUENCY 1
     Dates: start: 20160930, end: 201611
  9. TYLENOL EXTENDED RELIEF CAPLETS [Concomitant]
     Active Substance: ACETAMINOPHEN
     Indication: PROPHYLAXIS
     Dosage: 1 TABLET, FREQUENCY 3
     Route: 048
     Dates: start: 20160930, end: 20161005
  10. PERDIPINE [Concomitant]
     Active Substance: NICARDIPINE HYDROCHLORIDE
     Indication: HYPERTENSION
     Dosage: 2 MG, ONCE
     Dates: start: 20161023, end: 20161023
  11. CISPLAN [Concomitant]
     Active Substance: CISPLATIN
     Dosage: 114 MG, ONCE CYCLE 3, STRENGTH 50MG/100ML
     Route: 042
     Dates: start: 20161110, end: 20161110
  12. ALIMTA [Concomitant]
     Active Substance: PEMETREXED DISODIUM
     Dosage: 760 MG, ONCE CYCLE 3
     Route: 042
     Dates: start: 20161110, end: 20161110
  13. DEXAMETHASONE. [Concomitant]
     Active Substance: DEXAMETHASONE
     Dosage: 8 MG, STRENGTH 5MG/ML
     Route: 042
     Dates: start: 20161112, end: 20161113
  14. DEXAMETHASONE. [Concomitant]
     Active Substance: DEXAMETHASONE
     Indication: PROPHYLAXIS
     Dosage: 8 MG, FREQUENCY 2
     Route: 048
     Dates: start: 20161020, end: 20161020
  15. CIMETIDINE [Concomitant]
     Active Substance: CIMETIDINE
     Dosage: 1 AMP, FREQUENCY ONCE, STRENGTH 200MG/2ML
     Route: 042
     Dates: start: 20161020, end: 20161023
  16. SYLCON [Concomitant]
     Indication: DYSPEPSIA
     Dosage: 1 TABLET, FREQUENCY 3
     Route: 048
     Dates: start: 20160930, end: 20161127
  17. CISPLAN [Concomitant]
     Active Substance: CISPLATIN
     Dosage: 113 MG, ONCE, CYCLE 4, STRENGTH 50MG/100ML
     Route: 042
     Dates: start: 20161201, end: 20161201
  18. ALIMTA [Concomitant]
     Active Substance: PEMETREXED DISODIUM
     Indication: LUNG NEOPLASM MALIGNANT
     Dosage: 760 MG, ONCE, CYCLE 1
     Route: 042
     Dates: start: 20160929, end: 20160929
  19. DEXAMETHASONE. [Concomitant]
     Active Substance: DEXAMETHASONE
     Dosage: 8 MG, ONCE , STRENGTH 5MG/ML
     Route: 042
     Dates: start: 20161201, end: 20161201
  20. FOLIC ACID. [Concomitant]
     Active Substance: FOLIC ACID
     Indication: PROPHYLAXIS
     Dosage: 1 TABLET
     Route: 048
     Dates: start: 20160928
  21. CIMETIDINE [Concomitant]
     Active Substance: CIMETIDINE
     Dosage: 1 AMP, FREQUENCY ONCE, STRENGTH 200MG/2ML
     Route: 042
     Dates: start: 20161110, end: 20161113
  22. CIMET [Concomitant]
     Indication: PROPHYLACTIC CHEMOTHERAPY
     Dosage: 1 TABLET, FREQUENCY 1
     Route: 048
     Dates: start: 20161001, end: 20161002
  23. EMEND (FOSAPREPITANT DIMEGLUMINE) [Suspect]
     Active Substance: FOSAPREPITANT DIMEGLUMINE
     Indication: PROPHYLAXIS OF NAUSEA AND VOMITING
     Dosage: 150 MG, ONCE
     Route: 042
     Dates: start: 20160929, end: 20160929
  24. EMEND (FOSAPREPITANT DIMEGLUMINE) [Suspect]
     Active Substance: FOSAPREPITANT DIMEGLUMINE
     Dosage: 150 MG, ONCE
     Route: 042
     Dates: start: 20161110, end: 20161110
  25. CISPLAN [Concomitant]
     Active Substance: CISPLATIN
     Dosage: 114 MG, ONCE CYCLE 2, STRENGTH 50MG/100ML
     Route: 042
     Dates: start: 20161020, end: 20161020
  26. DEXAMETHASONE. [Concomitant]
     Active Substance: DEXAMETHASONE
     Indication: PROPHYLAXIS
     Dosage: 8 MG, ONCE, STRENGTH 5MG/ML
     Route: 042
     Dates: start: 20160930, end: 20160930
  27. DEXAMETHASONE. [Concomitant]
     Active Substance: DEXAMETHASONE
     Dosage: 8 MG, ONCE
     Route: 048
     Dates: start: 20161204, end: 20161204
  28. ALMAGEL (ALMAGATE) [Concomitant]
     Indication: PROPHYLAXIS
     Dosage: 15 ML, FREQUENCY 2
     Route: 048
     Dates: start: 20161203
  29. DEXAMETHASONE. [Concomitant]
     Active Substance: DEXAMETHASONE
     Dosage: 8 MG, ONCE, STRENGTH 5MG/ML
     Route: 042
     Dates: start: 20161021, end: 20161021
  30. DEXAMETHASONE. [Concomitant]
     Active Substance: DEXAMETHASONE
     Dosage: 12 MG, ONCE, STRENGTH 5MG/ML
     Route: 042
     Dates: start: 20161201, end: 20161201
  31. ALOXI [Concomitant]
     Active Substance: PALONOSETRON HYDROCHLORIDE
     Dosage: 0.25 ML, ONCE
     Route: 042
     Dates: start: 20161110, end: 20161110
  32. CIMETIDINE [Concomitant]
     Active Substance: CIMETIDINE
     Dosage: 1 AMP, FREQUENCY ONCE, STRENGTH 200MG/2ML
     Route: 042
     Dates: start: 20161201, end: 20161204
  33. TRIDOL (TRAMADOL HYDROCHLORIDE) [Concomitant]
     Indication: PROPHYLAXIS
     Dosage: 1 TABLET, FREQUENCY 1
     Route: 048
     Dates: start: 20161018, end: 20161020
  34. EMEND (FOSAPREPITANT DIMEGLUMINE) [Suspect]
     Active Substance: FOSAPREPITANT DIMEGLUMINE
     Dosage: 150 MG, ONCE
     Route: 042
     Dates: start: 20161020, end: 20161020
  35. DEXAMETHASONE. [Concomitant]
     Active Substance: DEXAMETHASONE
     Dosage: 12 MG, ONCE, STRENGTH 5MG/ML
     Route: 042
     Dates: start: 20161111, end: 20161111
  36. ALOXI [Concomitant]
     Active Substance: PALONOSETRON HYDROCHLORIDE
     Dosage: 0.25 MG, ONCE
     Route: 042
     Dates: start: 20161020, end: 20161020
  37. ALIMTA [Concomitant]
     Active Substance: PEMETREXED DISODIUM
     Dosage: 755 MG, ONCE CYCLE 4
     Route: 042
     Dates: start: 20161201, end: 20161201
  38. CIMETIDINE [Concomitant]
     Active Substance: CIMETIDINE
     Indication: PREMEDICATION
     Dosage: 1 AMP, FREQUENCY ONCE, STRENGTH 200MG/2ML
     Route: 042
     Dates: start: 20160929, end: 20160930
  39. MACPERAN [Concomitant]
     Active Substance: METOCLOPRAMIDE HYDROCHLORIDE
     Indication: PROPHYLAXIS
     Dosage: 1 TABLET, FREQUENCY 1
     Route: 048
     Dates: start: 20160930, end: 20161005
  40. ADIPAM [Concomitant]
     Indication: PROPHYLAXIS
     Dosage: 1 TABLET, FREQUENCY 3
     Route: 048
     Dates: start: 20161018, end: 20161020
  41. CISPLAN [Concomitant]
     Active Substance: CISPLATIN
     Indication: LUNG NEOPLASM MALIGNANT
     Dosage: 114 MG, ONCE, CYCLE 1, STRENGTH 50MG/100ML
     Dates: start: 20160929, end: 20160929
  42. ALIMTA [Concomitant]
     Active Substance: PEMETREXED DISODIUM
     Dosage: 760 MG, ONCE CYCLE 2
     Route: 042
     Dates: start: 20161020, end: 20161020
  43. DEXAMETHASONE. [Concomitant]
     Active Substance: DEXAMETHASONE
     Indication: PREMEDICATION
     Dosage: 12 MG, ONCE, STRENGTH 5MG/ML
     Route: 042
     Dates: start: 20160929, end: 20160929
  44. DEXAMETHASONE. [Concomitant]
     Active Substance: DEXAMETHASONE
     Dosage: 12 MG, ONCE, STRENGTH 5MG/ML
     Route: 042
     Dates: start: 20161020, end: 20161020
  45. DEXAMETHASONE. [Concomitant]
     Active Substance: DEXAMETHASONE
     Dosage: 8 MG, ONCE , STRENGTH 5MG/ML
     Route: 042
     Dates: start: 20160930, end: 20160930
  46. DEXAMETHASONE. [Concomitant]
     Active Substance: DEXAMETHASONE
     Dosage: 8 MG, ONCE , STRENGTH 5MG/ML
     Route: 042
     Dates: start: 20161111, end: 20161111
  47. DEXAMETHASONE. [Concomitant]
     Active Substance: DEXAMETHASONE
     Dosage: 8 MG, STRENGTH 5MG/ML
     Route: 042
     Dates: start: 20161203, end: 20161203
  48. DEXAMETHASONE. [Concomitant]
     Active Substance: DEXAMETHASONE
     Dosage: 8 MG, ONCE
     Route: 048
     Dates: start: 20161113, end: 20161113
  49. ALOXI [Concomitant]
     Active Substance: PALONOSETRON HYDROCHLORIDE
     Dosage: 0.25 MG, ONCE
     Route: 042
     Dates: start: 20161201, end: 20161201
  50. NORZYME [Concomitant]
     Indication: DYSPEPSIA
     Dosage: 457.7 MG, ONCE
     Route: 048
     Dates: start: 20161028
  51. CODEINE [Concomitant]
     Active Substance: CODEINE
     Indication: PAIN
     Dosage: 1 TABLET, FREQUENCY ONCE
     Route: 048
     Dates: start: 20161013
  52. TALION (BEPOTASTINE BESYLATE) [Concomitant]
     Active Substance: BEPOTASTINE
     Indication: PROPHYLAXIS
     Dosage: 1 TABLET, FREQUENCY 1
     Route: 048
     Dates: start: 20161018, end: 20161020

REACTIONS (1)
  - Pleural effusion [Recovered/Resolved]

NARRATIVE: CASE EVENT DATE: 20161012
